FAERS Safety Report 7711695-9 (Version None)
Quarter: 2011Q3

REPORT INFORMATION
  Report Type: 
  Country: None (occurrence: None)
  Receive Date: 20110826
  Receipt Date: 20110819
  Transmission Date: 20111222
  Serious: Yes (Other)
  Sender: FDA-Public Use
  Company Number: US-JNJFOC-20110303203

PATIENT
  Sex: Female

DRUGS (3)
  1. INVEGA [Suspect]
     Indication: PRODUCT USED FOR UNKNOWN INDICATION
     Route: 048
  2. LEXAPRO [Concomitant]
     Route: 048
  3. IBUPROFEN [Concomitant]
     Route: 065

REACTIONS (4)
  - PROLACTINOMA [None]
  - INJURY [None]
  - WEIGHT INCREASED [None]
  - EXTRAPYRAMIDAL DISORDER [None]
